FAERS Safety Report 21529212 (Version 1)
Quarter: 2022Q4

REPORT INFORMATION
  Report Type: Spontaneous
  Country: US (occurrence: US)
  Receive Date: 20221031
  Receipt Date: 20221031
  Transmission Date: 20230112
  Serious: Yes (Other)
  Sender: FDA-Public Use
  Company Number: US-SA-SAC20221028000975

PATIENT
  Age: 28 Year

DRUGS (1)
  1. ZANTAC [Suspect]
     Active Substance: RANITIDINE HYDROCHLORIDE
     Indication: Gastric ulcer
     Dosage: 75 MG, FREQUENCY: OTHER
     Dates: start: 201501, end: 201812

REACTIONS (1)
  - Bladder cancer stage II [Not Recovered/Not Resolved]

NARRATIVE: CASE EVENT DATE: 20190601
